FAERS Safety Report 24345489 (Version 1)
Quarter: 2024Q3

REPORT INFORMATION
  Report Type: Spontaneous
  Country: IL (occurrence: IL)
  Receive Date: 20240920
  Receipt Date: 20240920
  Transmission Date: 20241016
  Serious: Yes (Other)
  Sender: ALNYLAM PHARMACEUTICALS
  Company Number: IL-ALNYLAM NETHERLANDS BV-ALN-2024-005212

PATIENT

DRUGS (1)
  1. ONPATTRO [Suspect]
     Active Substance: PATISIRAN SODIUM
     Indication: Hereditary neuropathic amyloidosis
     Dosage: UNK
     Route: 065

REACTIONS (5)
  - Cardiomyopathy [Unknown]
  - Mobility decreased [Unknown]
  - Therapy interrupted [Not Recovered/Not Resolved]
  - Disease progression [Unknown]
  - Oedema due to cardiac disease [Not Recovered/Not Resolved]

NARRATIVE: CASE EVENT DATE: 20240101
